FAERS Safety Report 8165598-9 (Version None)
Quarter: 2012Q1

REPORT INFORMATION
  Report Type: 
  Country: None (occurrence: None)
  Receive Date: 20120223
  Receipt Date: 20120223
  Transmission Date: 20120608
  Serious: No
  Sender: FDA-Public Use
  Company Number: None

PATIENT
  Sex: Male
  Weight: 74.8435 kg

DRUGS (2)
  1. SOLODYN [Suspect]
     Dosage: 115  MG 1 X DAY
  2. DORYX [Suspect]
     Dosage: 150 MG 1 X DAY

REACTIONS (1)
  - AUTOIMMUNE HEPATITIS [None]
